FAERS Safety Report 5195264-3 (Version None)
Quarter: 2006Q4

REPORT INFORMATION
  Report Type: 
  Country: None (occurrence: None)
  Receive Date: 20061229
  Receipt Date: 20060915
  Transmission Date: 20070319
  Serious: Yes (Hospitalization, Other)
  Sender: FDA-Public Use
  Company Number: SG-BRISTOL-MYERS SQUIBB COMPANY-13514559

PATIENT
  Age: 55 Year
  Sex: Male

DRUGS (7)
  1. ENTECAVIR [Suspect]
     Route: 048
     Dates: start: 20050804, end: 20061201
  2. TACROLIMUS [Concomitant]
  3. ADEFOVIR DIPIVOXIL KIT [Concomitant]
  4. LACTULOSE [Concomitant]
     Dates: start: 20060912
  5. OMEPRAZOLE [Concomitant]
     Dates: start: 20060912
  6. CIPROFLOXACIN [Concomitant]
     Dates: start: 20060912
  7. MYCOPHENOLATE SODIUM [Concomitant]
     Dates: start: 20060912

REACTIONS (1)
  - CENTRAL NERVOUS SYSTEM LYMPHOMA [None]
